FAERS Safety Report 7372734-0 (Version None)
Quarter: 2011Q1

REPORT INFORMATION
  Report Type: 
  Country: None (occurrence: None)
  Receive Date: 20110324
  Receipt Date: 20110311
  Transmission Date: 20110831
  Serious: Yes (Hospitalization)
  Sender: FDA-Public Use
  Company Number: PHHY2011IT20097

PATIENT
  Age: 39 Year
  Sex: Female

DRUGS (5)
  1. AZATHIOPRINE [Suspect]
     Indication: IMMUNOSUPPRESSION
  2. TACROLIMUS [Suspect]
     Dosage: TARGET CONCENTRATION ABOUT 6 NG/DL
  3. TACROLIMUS [Suspect]
     Indication: IMMUNOSUPPRESSION
     Dosage: TARGET CONCENTRATION ABOUT 9 NG/DL
  4. PREDNISONE [Suspect]
     Dosage: 20 MG, QD
  5. PREDNISONE [Suspect]
     Indication: IMMUNOSUPPRESSION
     Dosage: 5 MG, QD

REACTIONS (6)
  - PYREXIA [None]
  - CLOSTRIDIUM DIFFICILE COLITIS [None]
  - NAUSEA [None]
  - VOMITING [None]
  - ABDOMINAL PAIN LOWER [None]
  - CLOSTRIDIUM TEST POSITIVE [None]
